FAERS Safety Report 7366069-X (Version None)
Quarter: 2011Q1

REPORT INFORMATION
  Report Type: 
  Country: None (occurrence: None)
  Receive Date: 20110322
  Receipt Date: 20110308
  Transmission Date: 20110831
  Serious: Yes (Hospitalization, Other)
  Sender: FDA-Public Use
  Company Number: US-JNJFOC-20080204505

PATIENT
  Sex: Male
  Weight: 26 kg

DRUGS (4)
  1. REMICADE [Suspect]
     Indication: CROHN'S DISEASE
     Route: 042
  2. REMICADE [Suspect]
     Route: 042
  3. MERCAPTOPURINE [Concomitant]
  4. REMICADE [Suspect]
     Dosage: TOTAL 10 DOSES
     Route: 042

REACTIONS (2)
  - STREPTOCOCCAL INFECTION [None]
  - GASTROENTERITIS [None]
